FAERS Safety Report 13761986 (Version 3)
Quarter: 2017Q3

REPORT INFORMATION
  Report Type: Spontaneous
  Country: US (occurrence: US)
  Receive Date: 20170718
  Receipt Date: 20170724
  Transmission Date: 20171127
  Serious: No
  Sender: FDA-Public Use
  Company Number: US-BIOGEN-2017BI00428779

PATIENT
  Age: 65 Year
  Sex: Male

DRUGS (1)
  1. ZINBRYTA [Suspect]
     Active Substance: DACLIZUMAB
     Indication: MULTIPLE SCLEROSIS
     Route: 058
     Dates: start: 20170305

REACTIONS (4)
  - Skin turgor decreased [Not Recovered/Not Resolved]
  - Injection site pain [Recovered/Resolved]
  - Needle issue [Unknown]
  - Puncture site haemorrhage [Unknown]

NARRATIVE: CASE EVENT DATE: 2017
